FAERS Safety Report 9262630 (Version 2)
Quarter: 2013Q2

REPORT INFORMATION
  Report Type: Report from Study
  Country: DE (occurrence: DE)
  Receive Date: 20130430
  Receipt Date: 20130513
  Transmission Date: 20140414
  Serious: Yes (Hospitalization)
  Sender: FDA-Public Use
  Company Number: DE-SHIRE-ALL1-2013-02648

PATIENT
  Sex: Male
  Weight: 68.8 kg

DRUGS (12)
  1. IDURSULFASE [Suspect]
     Indication: MUCOPOLYSACCHARIDOSIS II
     Dosage: 0.5 MG/KG, 1X/WEEK
     Route: 041
     Dates: start: 20040113
  2. ESOMEPRAZOL                        /01479301/ [Concomitant]
     Indication: GASTROINTESTINAL DISORDER
     Dosage: 20 MG, 1X/DAY:QD
     Route: 048
     Dates: start: 20111107
  3. ESOMEPRAZOL                        /01479301/ [Concomitant]
     Dosage: 40 MG, 2X/DAY:BID
     Dates: end: 2009
  4. RAMIPRIL [Concomitant]
     Indication: CARDIOVASCULAR DISORDER
     Dosage: 10 MG, 1X/DAY:QD
     Route: 048
     Dates: start: 20111107
  5. OMEPRAZOLE [Concomitant]
     Indication: GASTROINTESTINAL DISORDER
     Dosage: 40 MG, 1X/DAY:QD
     Route: 048
     Dates: start: 20111107
  6. OMEPRAZOLE [Concomitant]
     Dosage: 40 UNK, 1X/DAY:QD
     Route: 048
     Dates: end: 2009
  7. OMEPRAZOLE [Concomitant]
     Dosage: 40 UNK, 1X/DAY:QD
     Route: 048
     Dates: end: 2011
  8. METHAMIZOL [Concomitant]
     Indication: PAIN
     Dosage: 1.0 G, 3X/DAY:TID
     Route: 048
     Dates: start: 20111107
  9. METHAMIZOL [Concomitant]
     Dosage: 500 MG, 2X/DAY:BID
     Route: 048
     Dates: start: 20110114, end: 20111107
  10. METHAMIZOL [Concomitant]
     Dosage: 500 MG, 2X/DAY:BID
     Route: 048
     Dates: end: 2009
  11. DILTIAZEM HYDROCHLORIDE [Concomitant]
     Indication: CARDIOVASCULAR DISORDER
     Dosage: 60.0 MG, 3X/DAY:TID
     Route: 048
     Dates: start: 201108
  12. CANDESARTAN [Concomitant]
     Indication: CARDIOVASCULAR DISORDER
     Dosage: 12 MG, 1X/DAY:QD
     Route: 048

REACTIONS (1)
  - Pneumonia [Unknown]
